FAERS Safety Report 9826630 (Version 1)
Quarter: 2014Q1

REPORT INFORMATION
  Report Type: Spontaneous
  Country: US (occurrence: None)
  Receive Date: 20140116
  Receipt Date: 20140116
  Transmission Date: 20141002
  Serious: No
  Sender: FDA-Public Use
  Company Number: None

PATIENT
  Age: 68 Year
  Sex: Female
  Weight: 58.06 kg

DRUGS (12)
  1. ATORVASTATIN TAB 20MG., EQUIVALENT TO LIPITOR TAB 20MG. MANUFACTURER: GREENSTONE GREENSTONE [Suspect]
     Indication: BLOOD CHOLESTEROL INCREASED
     Route: 048
     Dates: start: 20131009
  2. LIPITOR [Concomitant]
  3. ZETIA [Concomitant]
  4. LISINOPRIL [Concomitant]
  5. VIT C [Concomitant]
  6. B-100 COMPLEX [Concomitant]
  7. GLUCOSAMINE [Concomitant]
  8. MAGNESIUM [Concomitant]
  9. FISH OIL [Concomitant]
  10. COQ10 [Concomitant]
  11. BABY ASPIRIN [Concomitant]
  12. GUMMY MULTI VITAMINS [Concomitant]

REACTIONS (3)
  - Headache [None]
  - Ocular hyperaemia [None]
  - Feeling abnormal [None]
